FAERS Safety Report 7235852-3 (Version None)
Quarter: 2011Q1

REPORT INFORMATION
  Report Type: 
  Country: None (occurrence: None)
  Receive Date: 20110120
  Receipt Date: 20110114
  Transmission Date: 20110831
  Serious: Yes (Hospitalization)
  Sender: FDA-Public Use
  Company Number: FR-ROCHE-748667

PATIENT
  Sex: Male
  Weight: 77 kg

DRUGS (3)
  1. PEGINTERFERON ALFA-2A [Suspect]
     Indication: HEPATITIS C
     Route: 058
     Dates: start: 20100104
  2. RIBAVIRIN [Suspect]
     Indication: HEPATITIS C
     Route: 048
     Dates: start: 20100104
  3. BLINDED TMC435 [Suspect]
     Indication: HEPATITIS C
     Dosage: DOSE BLINDED
     Route: 048
     Dates: start: 20100104

REACTIONS (1)
  - ALCOHOL ABUSE [None]
